FAERS Safety Report 14104270 (Version 2)
Quarter: 2017Q4

REPORT INFORMATION
  Report Type: Spontaneous
  Country: PT (occurrence: PT)
  Receive Date: 20171018
  Receipt Date: 20171109
  Transmission Date: 20180321
  Serious: Yes (Other)
  Sender: FDA-Public Use
  Company Number: PT-SA-2017SA198006

PATIENT
  Age: 45 Year
  Sex: Female

DRUGS (1)
  1. AUBAGIO [Suspect]
     Active Substance: TERIFLUNOMIDE
     Indication: RELAPSING-REMITTING MULTIPLE SCLEROSIS
     Route: 048
     Dates: start: 201703, end: 201708

REACTIONS (4)
  - Cough [Unknown]
  - Latent tuberculosis [Not Recovered/Not Resolved]
  - Lymphadenopathy [Unknown]
  - Weight decreased [Unknown]
